FAERS Safety Report 21886156 (Version 1)
Quarter: 2023Q1

REPORT INFORMATION
  Report Type: Spontaneous
  Country: None (occurrence: GB)
  Receive Date: 20230119
  Receipt Date: 20230119
  Transmission Date: 20230418
  Serious: Yes (Death, Other)
  Sender: FDA-Public Use
  Company Number: GB-Canton Laboratories, LLC-2136899

PATIENT
  Age: 79 Year
  Sex: Male

DRUGS (3)
  1. NAPROSYN [Suspect]
     Active Substance: NAPROXEN
     Indication: Gout
     Dates: start: 20221115, end: 20221123
  2. COLCHICINE [Suspect]
     Active Substance: COLCHICINE
     Dates: start: 20221115, end: 20221122
  3. DARBEPOETIN ALFA [Concomitant]
     Active Substance: DARBEPOETIN ALFA

REACTIONS (7)
  - Upper gastrointestinal haemorrhage [Fatal]
  - Myocardial infarction [Not Recovered/Not Resolved]
  - Haemoglobin decreased [Not Recovered/Not Resolved]
  - Melaena [Not Recovered/Not Resolved]
  - Blood urea increased [Unknown]
  - Troponin I increased [Not Recovered/Not Resolved]
  - Circulatory collapse [Not Recovered/Not Resolved]

NARRATIVE: CASE EVENT DATE: 20221122
